FAERS Safety Report 6659803-5 (Version None)
Quarter: 2010Q1

REPORT INFORMATION
  Report Type: 
  Country: None (occurrence: None)
  Receive Date: 20100326
  Receipt Date: 20100315
  Transmission Date: 20100710
  Serious: Yes (Hospitalization)
  Sender: FDA-Public Use
  Company Number: 008967

PATIENT
  Sex: Female
  Weight: 65 kg

DRUGS (9)
  1. CERTOLIZUMAB PEGOL (CDP870) [Suspect]
     Indication: RHEUMATOID ARTHRITIS
     Dosage: 200 MG 1X/2 WEEKS SUBCUTANEOUS
     Route: 058
     Dates: start: 20100217
  2. PREDNISOLONE [Concomitant]
  3. NAPROXEN [Concomitant]
  4. TYENOL ARTHRITIS [Concomitant]
  5. ALENDROATE SODIUM [Concomitant]
  6. OMEPRAZOLE [Concomitant]
  7. INDAPAMIDE [Concomitant]
  8. RAMIPRIL [Concomitant]
  9. SALAGEN [Concomitant]

REACTIONS (4)
  - DEHYDRATION [None]
  - DIARRHOEA [None]
  - NAUSEA [None]
  - VOMITING [None]
